FAERS Safety Report 14330076 (Version 1)
Quarter: 2017Q4

REPORT INFORMATION
  Report Type: Spontaneous
  Country: US (occurrence: US)
  Receive Date: 20171227
  Receipt Date: 20171227
  Transmission Date: 20180321
  Serious: No
  Sender: FDA-Public Use
  Company Number: US-TEVA-2017-US-835253

PATIENT
  Sex: Male

DRUGS (7)
  1. ARGININE [Suspect]
     Active Substance: ARGININE
     Dosage: 2 GRAM DAILY;
     Route: 048
  2. RANOLAZINE. [Suspect]
     Active Substance: RANOLAZINE
     Dosage: 2 GRAM DAILY;
     Route: 048
  3. AMLODIPINE [Suspect]
     Active Substance: AMLODIPINE BESYLATE
     Dosage: 20 MILLIGRAM DAILY;
     Route: 048
  4. PRASUGREL. [Suspect]
     Active Substance: PRASUGREL
     Dosage: 100 MILLIGRAM DAILY;
     Route: 048
  5. ASPIRIN. [Suspect]
     Active Substance: ASPIRIN
     Dosage: 325 MILLIGRAM DAILY;
     Route: 048
  6. ISOSORBIDE MONONITRATE. [Suspect]
     Active Substance: ISOSORBIDE MONONITRATE
     Dosage: 120 MILLIGRAM DAILY;
     Route: 048
  7. NEBIVOLOL. [Suspect]
     Active Substance: NEBIVOLOL
     Dosage: 100 MILLIGRAM DAILY;
     Route: 048

REACTIONS (2)
  - Hypotension [Unknown]
  - Nausea [Unknown]
